FAERS Safety Report 5106694-X (Version None)
Quarter: 2006Q3

REPORT INFORMATION
  Report Type: 
  Country: None (occurrence: None)
  Receive Date: 20060918
  Receipt Date: 20060906
  Transmission Date: 20061208
  Serious: Yes (Hospitalization)
  Sender: FDA-Public Use
  Company Number: PHBS2006FI13664

PATIENT
  Sex: Male

DRUGS (2)
  1. GLEEVEC [Suspect]
     Indication: CHRONIC MYELOID LEUKAEMIA
     Dosage: 1000 MG/DAY
     Route: 048
  2. GLEEVEC [Suspect]
     Route: 048

REACTIONS (2)
  - HIP ARTHROPLASTY [None]
  - HIP FRACTURE [None]
